FAERS Safety Report 12459314 (Version 2)
Quarter: 2016Q3

REPORT INFORMATION
  Report Type: Spontaneous
  Country: FR (occurrence: FR)
  Receive Date: 20160613
  Receipt Date: 20160920
  Transmission Date: 20161109
  Serious: Yes (Hospitalization, Other)
  Sender: FDA-Public Use
  Company Number: FR-GLAXOSMITHKLINE-FR2016GSK082315

PATIENT
  Age: 21 Year
  Sex: Female
  Weight: 37 kg

DRUGS (2)
  1. LAMICTAL [Suspect]
     Active Substance: LAMOTRIGINE
     Indication: EPILEPSY
     Dosage: 200 MG, BID
     Route: 048
     Dates: start: 2004
  2. LAMICTAL [Suspect]
     Active Substance: LAMOTRIGINE
     Dosage: 125 MG, BID
     Route: 048

REACTIONS (16)
  - Mydriasis [Recovering/Resolving]
  - Urinary retention [Recovering/Resolving]
  - Feeling hot [Recovering/Resolving]
  - Head titubation [Recovering/Resolving]
  - Hyperhidrosis [Recovering/Resolving]
  - Neurological symptom [Recovering/Resolving]
  - Gastrointestinal pain [Recovering/Resolving]
  - Malabsorption [Unknown]
  - Drug level increased [Unknown]
  - Crying [Recovering/Resolving]
  - Irritability [Recovering/Resolving]
  - Hyperacusis [Recovering/Resolving]
  - Photosensitivity reaction [Recovering/Resolving]
  - Trismus [Recovering/Resolving]
  - Nystagmus [Recovering/Resolving]
  - Pyrexia [Recovering/Resolving]

NARRATIVE: CASE EVENT DATE: 201507
